FAERS Safety Report 9138173 (Version 1)
Quarter: 2013Q1

REPORT INFORMATION
  Report Type: Spontaneous
  Country: LT (occurrence: LT)
  Receive Date: 20130304
  Receipt Date: 20130304
  Transmission Date: 20140127
  Serious: No
  Sender: FDA-Public Use
  Company Number: LT-ELI_LILLY_AND_COMPANY-LT201302007153

PATIENT
  Age: 28 Year
  Sex: Male

DRUGS (1)
  1. ZYPADHERA [Suspect]
     Indication: SCHIZOPHRENIA
     Dosage: 210 MG, EVERY 3 WEEKS
     Route: 030
     Dates: start: 20130115

REACTIONS (4)
  - Agitation [Not Recovered/Not Resolved]
  - Fatigue [Not Recovered/Not Resolved]
  - Epistaxis [Unknown]
  - Drug ineffective [Unknown]
